FAERS Safety Report 4760021-6 (Version None)
Quarter: 2005Q3

REPORT INFORMATION
  Report Type: 
  Country: None (occurrence: None)
  Receive Date: 20050831
  Receipt Date: 20050818
  Transmission Date: 20060218
  Serious: Yes (Other)
  Sender: FDA-Public Use
  Company Number: 2005090212

PATIENT
  Age: 65 Year
  Sex: Male

DRUGS (7)
  1. VIAGRA [Suspect]
     Indication: ERECTILE DYSFUNCTION
     Dosage: (100 MG, AS NECESSARY), ORAL
     Route: 048
     Dates: start: 20030501, end: 20031101
  2. ANTIHYPERTENSIVES (ANTIHYPERTENSIVES) [Concomitant]
  3. ZOCOR [Concomitant]
  4. ACETYLSALICYLIC ACID SRT [Concomitant]
  5. TIAZAC [Concomitant]
  6. VALSARTAN [Concomitant]
  7. ATIVAN [Concomitant]

REACTIONS (9)
  - BLINDNESS UNILATERAL [None]
  - CATARACT [None]
  - CUTIS LAXA [None]
  - HYPERMETROPIA [None]
  - OPTIC ATROPHY [None]
  - OPTIC ISCHAEMIC NEUROPATHY [None]
  - PUPILLARY REFLEX IMPAIRED [None]
  - SLEEP APNOEA SYNDROME [None]
  - SNORING [None]
